FAERS Safety Report 21702517 (Version 1)
Quarter: 2022Q4

REPORT INFORMATION
  Report Type: Spontaneous
  Country: US (occurrence: US)
  Receive Date: 20221208
  Receipt Date: 20221208
  Transmission Date: 20230112
  Serious: No
  Sender: FDA-Public Use
  Company Number: US-IBSA PHARMA INC.-2022IBS000162

PATIENT

DRUGS (3)
  1. TIROSINT [Suspect]
     Active Substance: LEVOTHYROXINE SODIUM
     Indication: Product used for unknown indication
     Dosage: 13 ?G, 2 CAPSULES DAILY FOR 5 DAYS PER WEEK
     Route: 048
     Dates: start: 20200629
  2. TIROSINT [Suspect]
     Active Substance: LEVOTHYROXINE SODIUM
     Dosage: 25 ?G, QD, IN THE MORNING ON AN EMPTY STOMACH
     Route: 048
     Dates: start: 20200629
  3. TIROSINT [Suspect]
     Active Substance: LEVOTHYROXINE SODIUM
     Dosage: 137 ?G, QD, ON AN EMPTY STOMACH
     Route: 048
     Dates: start: 20200629

REACTIONS (2)
  - Weight increased [Not Recovered/Not Resolved]
  - Product dose omission issue [Unknown]
